FAERS Safety Report 11756649 (Version 2)
Quarter: 2015Q4

REPORT INFORMATION
  Report Type: Spontaneous
  Country: FI (occurrence: FI)
  Receive Date: 20151120
  Receipt Date: 20151124
  Transmission Date: 20160304
  Serious: Yes (Hospitalization, Other)
  Sender: FDA-Public Use
  Company Number: FI-ROCHE-1662117

PATIENT
  Sex: Female

DRUGS (8)
  1. THYROXIN [Concomitant]
     Active Substance: LEVOTHYROXINE
     Route: 065
  2. PRIMASPAN [Concomitant]
     Route: 065
  3. MELOXICAM. [Concomitant]
     Active Substance: MELOXICAM
     Route: 065
  4. ROACTEMRA [Suspect]
     Active Substance: TOCILIZUMAB
     Indication: SERONEGATIVE ARTHRITIS
     Route: 042
     Dates: start: 201004, end: 2014
  5. ROACTEMRA [Suspect]
     Active Substance: TOCILIZUMAB
     Indication: ANKYLOSING SPONDYLITIS
     Route: 042
     Dates: start: 201503, end: 201511
  6. ARAVA [Concomitant]
     Active Substance: LEFLUNOMIDE
     Route: 065
  7. PREDNISOLON [Concomitant]
     Active Substance: PREDNISOLONE
     Route: 065
  8. SIMVASTATIN. [Concomitant]
     Active Substance: SIMVASTATIN
     Route: 065

REACTIONS (5)
  - Colectomy [Recovered/Resolved]
  - Surgery [Recovered/Resolved]
  - Abscess rupture [Recovered/Resolved]
  - Diverticulitis [Recovered/Resolved]
  - Female genital tract fistula [Recovered/Resolved]

NARRATIVE: CASE EVENT DATE: 2014
